FAERS Safety Report 4976849-3 (Version None)
Quarter: 2006Q2

REPORT INFORMATION
  Report Type: 
  Country: None (occurrence: None)
  Receive Date: 20060418
  Receipt Date: 20060418
  Transmission Date: 20061013
  Serious: Yes (Death)
  Sender: FDA-Public Use
  Company Number: None

PATIENT
  Sex: Male
  Weight: 72 kg

DRUGS (5)
  1. VELCADE [Suspect]
     Dosage: 1.0 MG /M2 BID D4 EVERY 3 WEEKS X 6 CYCLES IV
     Route: 042
     Dates: start: 20060209
  2. VELCADE [Suspect]
     Dosage: 1.0 MG /M2 BID D4 EVERY 3 WEEKS X 6 CYCLES IV
     Route: 042
     Dates: start: 20060213
  3. VELCADE [Suspect]
     Dosage: 1.0 MG /M2 BID D4 EVERY 3 WEEKS X 6 CYCLES IV
     Route: 042
     Dates: start: 20060303
  4. VELCADE [Suspect]
     Dosage: 1.0 MG /M2 BID D4 EVERY 3 WEEKS X 6 CYCLES IV
     Route: 042
     Dates: start: 20060306
  5. VELCADE [Suspect]
     Dosage: 1.0 MG /M2 BID D4 EVERY 3 WEEKS X 6 CYCLES IV
     Route: 042
     Dates: start: 20060327

REACTIONS (2)
  - PNEUMONIA [None]
  - PNEUMONITIS [None]
